FAERS Safety Report 7976046-3 (Version None)
Quarter: 2011Q4

REPORT INFORMATION
  Report Type: 
  Country: None (occurrence: None)
  Receive Date: 20111213
  Receipt Date: 20111212
  Transmission Date: 20120403
  Serious: No
  Sender: FDA-Public Use
  Company Number: US-BAYER-2011-119410

PATIENT
  Age: 54 Year
  Sex: Female
  Weight: 65.306 kg

DRUGS (2)
  1. PREDNISONE TAB [Concomitant]
     Dosage: 4 TABLETS EVERY 6 HOURS
  2. ULTRAVIST 150 [Suspect]
     Indication: COMPUTERISED TOMOGRAM
     Dosage: 100 ML BOTTLE; LT. ANTE CUBITAL AND INJECTION RATE 3 ML/MIN
     Route: 042
     Dates: start: 20111212

REACTIONS (3)
  - PRURITUS [None]
  - ERYTHEMA [None]
  - CHEST DISCOMFORT [None]
